FAERS Safety Report 5015006-1 (Version None)
Quarter: 2006Q2

REPORT INFORMATION
  Report Type: 
  Country: None (occurrence: None)
  Receive Date: 20060425
  Receipt Date: 20050321
  Transmission Date: 20061013
  Serious: Yes (Other)
  Sender: FDA-Public Use
  Company Number: WAES 0503USA03653

PATIENT
  Sex: 0

DRUGS (2)
  1. SINGULAIR [Suspect]
     Dosage: PO
     Route: 048
  2. [THERAPY UNSPECIFIED] [Concomitant]

REACTIONS (2)
  - ABNORMAL BEHAVIOUR [None]
  - CONVULSION [None]
